FAERS Safety Report 9875251 (Version 1)
Quarter: 2014Q1

REPORT INFORMATION
  Report Type: Spontaneous
  Country: US (occurrence: None)
  Receive Date: 20140205
  Receipt Date: 20140205
  Transmission Date: 20141002
  Serious: No
  Sender: FDA-Public Use
  Company Number: None

PATIENT
  Age: 12 Year
  Sex: Female
  Weight: 63.5 kg

DRUGS (1)
  1. SOLODYN [Suspect]
     Indication: ACNE
     Dosage: 1 PILL ?ONCE DAILY?TAKEN BY MOUTH?ABOUT 3 WEEKS OR MORE
     Route: 048

REACTIONS (4)
  - Urticaria [None]
  - Fatigue [None]
  - Arthralgia [None]
  - Nausea [None]
